FAERS Safety Report 6078629-7 (Version None)
Quarter: 2009Q1

REPORT INFORMATION
  Report Type: 
  Country: None (occurrence: None)
  Receive Date: 20090215
  Receipt Date: 20090105
  Transmission Date: 20090719
  Serious: Yes (Other)
  Sender: FDA-Public Use
  Company Number: US-PFIZER INC-2008095647

PATIENT
  Sex: Female
  Weight: 56.7 kg

DRUGS (7)
  1. CHANTIX [Suspect]
     Indication: SMOKING CESSATION THERAPY
     Route: 048
     Dates: start: 20080802
  2. HYDROMORPHONE HCL [Concomitant]
  3. CRESTOR [Concomitant]
  4. TRICOR [Concomitant]
  5. ZETIA [Concomitant]
  6. DIAZEPAM [Concomitant]
  7. LUNESTA [Concomitant]

REACTIONS (2)
  - FEELING ABNORMAL [None]
  - HALLUCINATION [None]
